FAERS Safety Report 7936005-3 (Version None)
Quarter: 2011Q4

REPORT INFORMATION
  Report Type: 
  Country: None (occurrence: None)
  Receive Date: 20111121
  Receipt Date: 20111111
  Transmission Date: 20120403
  Serious: No
  Sender: FDA-Public Use
  Company Number: 2011-01312

PATIENT
  Age: 61 Year
  Sex: Male
  Weight: 113.3993 kg

DRUGS (3)
  1. ZICAM ULTRA COLD REMEDY RAPIDMELTS (CHERRY) [Suspect]
     Indication: NASOPHARYNGITIS
     Dosage: 1 RAPID MELT EVERY 4 HOURS
     Dates: start: 20111017, end: 20111019
  2. ZICAM ULTRA COLD REMEDY RAPIDMELTS (CHERRY) [Suspect]
     Indication: OROPHARYNGEAL PAIN
     Dosage: 1 RAPID MELT EVERY 4 HOURS
     Dates: start: 20111017, end: 20111019
  3. ATENOLOL [Concomitant]

REACTIONS (1)
  - HYPOGEUSIA [None]
